FAERS Safety Report 8984377 (Version 1)
Quarter: 2012Q4

REPORT INFORMATION
  Report Type: Report from Study
  Country: CA (occurrence: CA)
  Receive Date: 20121226
  Receipt Date: 20121226
  Transmission Date: 20130627
  Serious: Yes (Other)
  Sender: FDA-Public Use
  Company Number: CA-JNJFOC-20121209404

PATIENT
  Sex: Male
  Weight: 72.7 kg

DRUGS (9)
  1. REMICADE [Suspect]
     Indication: CROHN^S DISEASE
     Route: 042
     Dates: start: 20080108
  2. REMICADE [Suspect]
     Indication: CROHN^S DISEASE
     Route: 042
     Dates: start: 20121213
  3. IMURAN [Concomitant]
     Route: 065
  4. CALCIUM [Concomitant]
     Route: 065
  5. METOPROLOL [Concomitant]
     Route: 065
  6. ACETYL SALICYLIC ACID [Concomitant]
     Route: 065
  7. PLAVIX [Concomitant]
     Route: 065
  8. RAMIPRIL [Concomitant]
     Route: 065
  9. PREVACID [Concomitant]
     Route: 065

REACTIONS (3)
  - Diverticulitis [Unknown]
  - Polyp [Unknown]
  - Intestinal stenosis [Unknown]
